FAERS Safety Report 11930880 (Version 1)
Quarter: 2016Q1

REPORT INFORMATION
  Report Type: Spontaneous
  Country: DE (occurrence: DE)
  Receive Date: 20160120
  Receipt Date: 20160120
  Transmission Date: 20160526
  Serious: Yes (Other)
  Sender: FDA-Public Use
  Company Number: PHHY2016DE006380

PATIENT
  Sex: Male

DRUGS (1)
  1. ULTIBRO BREEZHALER [Suspect]
     Active Substance: GLYCOPYRRONIUM\INDACATEROL
     Indication: CHRONIC OBSTRUCTIVE PULMONARY DISEASE
     Dosage: 1 DF (50 MCG GLYCOPYRRONIUM/ 110 MCG INDACATEROL), QD
     Route: 055
     Dates: start: 2015

REACTIONS (2)
  - Eczema [Unknown]
  - Renal cyst [Unknown]

NARRATIVE: CASE EVENT DATE: 20160112
